FAERS Safety Report 12904502 (Version 1)
Quarter: 2016Q4

REPORT INFORMATION
  Report Type: Spontaneous
  Country: US (occurrence: US)
  Receive Date: 20161102
  Receipt Date: 20161102
  Transmission Date: 20170207
  Serious: No
  Sender: FDA-Public Use
  Company Number: US-B.I. PHARMACEUTICALS,INC./RIDGEFIELD-2016-BI-071449

PATIENT
  Sex: Male

DRUGS (2)
  1. SPIRIVA [Suspect]
     Active Substance: TIOTROPIUM BROMIDE MONOHYDRATE
     Indication: EMPHYSEMA
     Dosage: 1 CAP PER DAY;  FORM STRENGTH: 18 MCG; FORMULATION: CAPSULE? ADMINISTRATION CORRECT? YES ?ACTION(S)
     Route: 055
  2. SPIRIVA [Suspect]
     Active Substance: TIOTROPIUM BROMIDE MONOHYDRATE
     Indication: EMPHYSEMA
     Dosage: FORM STRENGTH: 2.5 MCG; FORMULATION: INHALATION SPRAY? ADMINISTRATION CORRECT? NR(NOT REPORTED) ?ACT
     Route: 055

REACTIONS (2)
  - Cough [Not Recovered/Not Resolved]
  - Productive cough [Unknown]
